FAERS Safety Report 4834165-4 (Version None)
Quarter: 2005Q4

REPORT INFORMATION
  Report Type: 
  Country: None (occurrence: None)
  Receive Date: 20051122
  Receipt Date: 20051110
  Transmission Date: 20060501
  Serious: Yes (Hospitalization)
  Sender: FDA-Public Use
  Company Number: JP-JNJFOC-20051104228

PATIENT
  Age: 66 Year
  Sex: Female

DRUGS (11)
  1. RISPERDAL [Suspect]
     Route: 048
  2. RISPERDAL [Suspect]
     Indication: DRUG USE FOR UNKNOWN INDICATION
     Route: 048
  3. PAROXETINE HCL [Suspect]
  4. PAROXETINE HCL [Suspect]
  5. PAROXETINE HCL [Suspect]
  6. PAROXETINE HCL [Suspect]
  7. PAROXETINE HCL [Suspect]
  8. PAROXETINE HCL [Suspect]
  9. PAROXETINE HCL [Suspect]
     Indication: DRUG USE FOR UNKNOWN INDICATION
  10. FLUVOXAMINE MALEATE [Suspect]
     Indication: DRUG USE FOR UNKNOWN INDICATION
  11. TRIHEXYPHENIDYL HYDROCHLORIDE [Concomitant]
     Route: 048

REACTIONS (1)
  - SEROTONIN SYNDROME [None]
